FAERS Safety Report 19811706 (Version 2)
Quarter: 2021Q3

REPORT INFORMATION
  Report Type: Report from Study
  Country: US (occurrence: US)
  Receive Date: 20210910
  Receipt Date: 20210922
  Transmission Date: 20211014
  Serious: Yes (Hospitalization)
  Sender: FDA-Public Use
  Company Number: US-IGSA-BIG0015925

PATIENT
  Age: 44 Year
  Sex: Female
  Weight: 109 kg

DRUGS (4)
  1. TYLENOL [Concomitant]
     Active Substance: ACETAMINOPHEN
     Indication: PREMEDICATION
     Dosage: UNK
     Dates: start: 20210809
  2. GAMUNEX?C [Suspect]
     Active Substance: HUMAN IMMUNOGLOBULIN G
     Indication: PRIMARY IMMUNODEFICIENCY SYNDROME
     Dosage: 30 GRAM, QD
     Route: 042
     Dates: start: 20210809, end: 20210813
  3. GAMUNEX?C [Suspect]
     Active Substance: HUMAN IMMUNOGLOBULIN G
     Indication: CHRONIC INFLAMMATORY DEMYELINATING POLYRADICULONEUROPATHY
     Dosage: 25 GRAM, QD
     Route: 042
     Dates: start: 200708
  4. ANTIBIOTIC [CHLORAMPHENICOL] [Concomitant]
     Dosage: UNK
     Route: 042
     Dates: start: 20210809

REACTIONS (6)
  - Chills [Recovering/Resolving]
  - Contusion [Recovering/Resolving]
  - Rash [Recovering/Resolving]
  - Pyrexia [Recovering/Resolving]
  - Kidney infection [Unknown]
  - Nausea [Unknown]

NARRATIVE: CASE EVENT DATE: 20210808
